FAERS Safety Report 7386774-9 (Version None)
Quarter: 2011Q1

REPORT INFORMATION
  Report Type: 
  Country: None (occurrence: None)
  Receive Date: 20110331
  Receipt Date: 20110318
  Transmission Date: 20110831
  Serious: Yes (Other)
  Sender: FDA-Public Use
  Company Number: A0920570A

PATIENT
  Sex: Male
  Weight: 71 kg

DRUGS (1)
  1. NICORETTE [Suspect]
     Indication: SMOKING CESSATION THERAPY
     Dosage: 6GUM PER DAY
     Route: 002
     Dates: start: 20091201, end: 20101201

REACTIONS (4)
  - BODY TEMPERATURE DECREASED [None]
  - THERAPEUTIC RESPONSE UNEXPECTED [None]
  - ANOSMIA [None]
  - AGEUSIA [None]
